FAERS Safety Report 11276674 (Version 1)
Quarter: 2015Q3

REPORT INFORMATION
  Report Type: Report from Study
  Country: JP (occurrence: JP)
  Receive Date: 20150716
  Receipt Date: 20150716
  Transmission Date: 20151125
  Serious: Yes (Hospitalization)
  Sender: FDA-Public Use
  Company Number: JP-BAYER-2015-115120

PATIENT
  Age: 70 Year
  Sex: Male
  Weight: 60 kg

DRUGS (10)
  1. MICARDIS [Concomitant]
     Active Substance: TELMISARTAN
     Indication: HYPERTENSION
     Dosage: 40 MG, OM
     Route: 048
     Dates: start: 20150330
  2. BASEN [Concomitant]
     Active Substance: VOGLIBOSE
     Indication: DIABETES MELLITUS
     Dosage: 0.2 MG, TID
     Route: 048
     Dates: start: 20150209
  3. JANUVIA [Concomitant]
     Active Substance: SITAGLIPTIN PHOSPHATE
     Indication: DIABETES MELLITUS
     Dosage: 50 MG, OM
     Route: 048
  4. AMARYL [Concomitant]
     Active Substance: GLIMEPIRIDE
     Indication: DIABETES MELLITUS
     Dosage: DAILY DOSE 1.5 MG
     Route: 048
     Dates: start: 20141225
  5. LIPITOR [Concomitant]
     Active Substance: ATORVASTATIN CALCIUM
     Indication: DYSLIPIDAEMIA
     Dosage: 5 MG, QD
     Route: 048
  6. BLINDED RIVAROXABAN [Suspect]
     Active Substance: RIVAROXABAN
     Dosage: 1 DF, BID
     Route: 048
     Dates: start: 20140630, end: 20150402
  7. CALSLOT [Concomitant]
     Active Substance: MANIDIPINE HYDROCHLORIDE
     Indication: HYPERTENSION
     Dosage: 20 MG, OM
     Route: 048
  8. METFORMIN [Concomitant]
     Active Substance: METFORMIN HYDROCHLORIDE
     Indication: DIABETES MELLITUS
     Dosage: 500 MG, BID
     Route: 048
  9. ACETYLSALICYLIC ACID({=100 MG) [Suspect]
     Active Substance: ASPIRIN
     Dosage: UNK UNK, QD
     Route: 048
     Dates: start: 20140630, end: 20150402
  10. PANTOPRAZOLE OR PLACEBO (CODE NOT BROKEN) [Suspect]
     Active Substance: PANTOPRAZOLE SODIUM
     Dosage: UNK UNK, QD
     Route: 048
     Dates: start: 20140630, end: 20150402

REACTIONS (3)
  - Amylase increased [Not Recovered/Not Resolved]
  - Lipase increased [Not Recovered/Not Resolved]
  - Amylase increased [Not Recovered/Not Resolved]

NARRATIVE: CASE EVENT DATE: 20141020
